FAERS Safety Report 10559499 (Version 2)
Quarter: 2014Q4

REPORT INFORMATION
  Report Type: Spontaneous
  Country: IT (occurrence: IT)
  Receive Date: 20141103
  Receipt Date: 20141118
  Transmission Date: 20150529
  Serious: Yes (Hospitalization)
  Sender: FDA-Public Use
  Company Number: CHPA2014IT014628

PATIENT
  Age: 37 Year
  Sex: Male

DRUGS (2)
  1. SOLDESAM [Suspect]
     Active Substance: DEXAMETHASONE
     Indication: NECK PAIN
     Dosage: UNK
     Route: 065
     Dates: start: 20140911, end: 20140916
  2. DICLOFENAC [Suspect]
     Active Substance: DICLOFENAC
     Indication: NECK PAIN
     Dosage: UNK
     Route: 065
     Dates: start: 20140911, end: 20140916

REACTIONS (6)
  - Melaena [Recovering/Resolving]
  - Gastric perforation [Recovering/Resolving]
  - Abdominal pain upper [Recovering/Resolving]
  - Faeces discoloured [Recovering/Resolving]
  - Abdominal pain [Recovering/Resolving]
  - Vomiting [Recovering/Resolving]

NARRATIVE: CASE EVENT DATE: 20140914
